FAERS Safety Report 10901669 (Version 1)
Quarter: 2015Q1

REPORT INFORMATION
  Report Type: Report from Study
  Country: US (occurrence: US)
  Receive Date: 20150310
  Receipt Date: 20150310
  Transmission Date: 20150721
  Serious: Yes (Hospitalization, Other)
  Sender: FDA-Public Use
  Company Number: US-GILEAD-2015-0141261

PATIENT
  Age: 63 Year
  Sex: Female

DRUGS (21)
  1. POTASSIUM CL [Concomitant]
     Active Substance: POTASSIUM CHLORIDE
  2. GLYBURIDE. [Concomitant]
     Active Substance: GLYBURIDE
  3. BOTOX [Concomitant]
     Active Substance: ONABOTULINUMTOXINA
  4. MAGNESIUM OXIDE. [Concomitant]
     Active Substance: MAGNESIUM OXIDE
  5. TORSEMIDE. [Concomitant]
     Active Substance: TORSEMIDE
  6. REVATIO [Concomitant]
     Active Substance: SILDENAFIL CITRATE
  7. ONDANSETRON [Concomitant]
     Active Substance: ONDANSETRON
  8. FUROSEMID                          /00032601/ [Concomitant]
     Active Substance: FUROSEMIDE
  9. ULORIC [Concomitant]
     Active Substance: FEBUXOSTAT
  10. HYDROCHLOROTHIAZIDE. [Concomitant]
     Active Substance: HYDROCHLOROTHIAZIDE
  11. AMBRISENTAN [Suspect]
     Active Substance: AMBRISENTAN
     Indication: PULMONARY ARTERIAL HYPERTENSION
     Dosage: 5 MG, QD
     Route: 065
     Dates: start: 20130619
  12. OMEPRAZOLE. [Concomitant]
     Active Substance: OMEPRAZOLE
  13. ESZOPICLONE. [Concomitant]
     Active Substance: ESZOPICLONE
  14. SUCRALFATE. [Concomitant]
     Active Substance: SUCRALFATE
  15. ALLOPURINOL. [Concomitant]
     Active Substance: ALLOPURINOL
  16. SPIRONOLACTONE. [Concomitant]
     Active Substance: SPIRONOLACTONE
  17. LASIX [Concomitant]
     Active Substance: FUROSEMIDE
  18. OXYCODONE AND ACETAMINOPHEN [Concomitant]
     Active Substance: ACETAMINOPHEN\OXYCODONE\OXYCODONE HYDROCHLORIDE
  19. METOLAZONE. [Concomitant]
     Active Substance: METOLAZONE
  20. COLCRYS [Concomitant]
     Active Substance: COLCHICINE
  21. METFORMIN [Concomitant]
     Active Substance: METFORMIN HYDROCHLORIDE

REACTIONS (4)
  - Infection [Unknown]
  - Malaise [Unknown]
  - Unresponsive to stimuli [Unknown]
  - White blood cell count increased [Not Recovered/Not Resolved]

NARRATIVE: CASE EVENT DATE: 20150302
